FAERS Safety Report 12735787 (Version 1)
Quarter: 2016Q3

REPORT INFORMATION
  Report Type: Spontaneous
  Country: US (occurrence: US)
  Receive Date: 20160913
  Receipt Date: 20160913
  Transmission Date: 20161109
  Serious: No
  Sender: FDA-Public Use
  Company Number: US-JNJFOC-20160712068

PATIENT
  Age: 64 Year
  Sex: Female
  Weight: 117.03 kg

DRUGS (2)
  1. IMODIUM MULTI-SYMPTOM RELIEF [Suspect]
     Active Substance: DIMETHICONE\LOPERAMIDE HYDROCHLORIDE
     Indication: FAECES SOFT
     Dosage: SOMETIMES TAKE 2 CAPLETS
     Route: 048
  2. IMODIUM MULTI-SYMPTOM RELIEF [Suspect]
     Active Substance: DIMETHICONE\LOPERAMIDE HYDROCHLORIDE
     Indication: DIARRHOEA
     Dosage: SOMETIMES TAKE 2 CAPLETS
     Route: 048

REACTIONS (3)
  - Product packaging issue [Unknown]
  - Inappropriate schedule of drug administration [Unknown]
  - Product label issue [Unknown]
